FAERS Safety Report 4328212-6 (Version None)
Quarter: 2004Q1

REPORT INFORMATION
  Report Type: 
  Country: None (occurrence: None)
  Receive Date: 20040325
  Receipt Date: 20040109
  Transmission Date: 20041129
  Serious: No
  Sender: FDA-Public Use
  Company Number: USA-2004-0012432

PATIENT
  Age: 77 Year
  Sex: Male

DRUGS (6)
  1. SPECTRACEF [Suspect]
     Indication: BRONCHITIS CHRONIC
     Dosage: 400 MG, BID, ORAL
     Route: 048
     Dates: start: 20031201
  2. SPECTRACEF [Suspect]
     Indication: CONDITION AGGRAVATED
     Dosage: 400 MG, BID, ORAL
     Route: 048
     Dates: start: 20031201
  3. TEGRETOL [Concomitant]
  4. BACLOFEN [Concomitant]
  5. PEPCID [Concomitant]
  6. LOPRESSOR [Concomitant]

REACTIONS (1)
  - DIARRHOEA [None]
